FAERS Safety Report 6099277-9 (Version None)
Quarter: 2009Q1

REPORT INFORMATION
  Report Type: 
  Country: None (occurrence: None)
  Receive Date: 20090303
  Receipt Date: 20090224
  Transmission Date: 20090719
  Serious: Yes (Other)
  Sender: FDA-Public Use
  Company Number: JP-JNJFOC-20090206572

PATIENT
  Age: 65 Year
  Sex: Male

DRUGS (3)
  1. ITRIZOLE [Suspect]
     Indication: PYREXIA
     Route: 048
  2. ITRIZOLE [Suspect]
     Indication: SYSTEMIC MYCOSIS
     Route: 048
  3. ITRIZOLE [Suspect]
     Indication: ORAL CANDIDIASIS
     Route: 048

REACTIONS (5)
  - EOSINOPHILIA [None]
  - GASTROINTESTINAL HAEMORRHAGE [None]
  - PYREXIA [None]
  - RASH [None]
  - WHITE BLOOD CELL COUNT INCREASED [None]
